FAERS Safety Report 8209821-0 (Version None)
Quarter: 2012Q1

REPORT INFORMATION
  Report Type: 
  Country: None (occurrence: None)
  Receive Date: 20120314
  Receipt Date: 20120307
  Transmission Date: 20120608
  Serious: Yes (Other)
  Sender: FDA-Public Use
  Company Number: PHHY2012JP021897

PATIENT
  Age: 84 Year
  Sex: Female

DRUGS (1)
  1. ZADITEN [Suspect]
     Indication: RHINORRHOEA
     Dosage: 1 MG, UNK
     Route: 048
     Dates: start: 20120306, end: 20120306

REACTIONS (1)
  - CHOKING [None]
